FAERS Safety Report 6239405-5 (Version None)
Quarter: 2009Q2

REPORT INFORMATION
  Report Type: 
  Country: None (occurrence: None)
  Receive Date: 20090622
  Receipt Date: 20090610
  Transmission Date: 20091009
  Serious: Yes (Other)
  Sender: FDA-Public Use
  Company Number: US-PFIZER INC-2009215404

PATIENT
  Sex: Male
  Weight: 107 kg

DRUGS (2)
  1. LYRICA [Suspect]
     Indication: FIBROMYALGIA
     Dosage: 100 MG, 3X/DAY
     Dates: start: 20090501, end: 20090501
  2. LYRICA [Suspect]
     Indication: NEURALGIA

REACTIONS (8)
  - BLINDNESS UNILATERAL [None]
  - CAPILLARY DISORDER [None]
  - CEREBROVASCULAR ACCIDENT [None]
  - DRUG HYPERSENSITIVITY [None]
  - HYPOAESTHESIA [None]
  - LYMPHOEDEMA [None]
  - OSTEOARTHRITIS [None]
  - PAIN [None]
